FAERS Safety Report 9639540 (Version 3)
Quarter: 2014Q2

REPORT INFORMATION
  Report Type: Spontaneous
  Country: US (occurrence: US)
  Receive Date: 20131023
  Receipt Date: 20140429
  Transmission Date: 20141212
  Serious: Yes (Hospitalization)
  Sender: FDA-Public Use
  Company Number: US-BIOGENIDEC-2006BI003819

PATIENT
  Age: 62 Year
  Sex: Female

DRUGS (12)
  1. AVONEX [Suspect]
     Indication: MULTIPLE SCLEROSIS
     Route: 030
     Dates: start: 200111
  2. AVONEX [Suspect]
     Indication: MULTIPLE SCLEROSIS
     Route: 030
     Dates: start: 20020118
  3. AVONEX [Suspect]
     Indication: MULTIPLE SCLEROSIS
     Route: 030
     Dates: start: 200308
  4. AVONEX [Suspect]
     Indication: MULTIPLE SCLEROSIS
     Route: 030
     Dates: start: 2004
  5. PROVIGIL [Concomitant]
  6. FOSAMAX [Concomitant]
  7. BENICAR [Concomitant]
  8. BONIVA [Concomitant]
  9. TARKA [Concomitant]
  10. FLEXERIL [Concomitant]
  11. IBUPROFEN [Concomitant]
  12. METHYLPREDNISOLONE [Concomitant]

REACTIONS (6)
  - Cerebral infarction [Recovered/Resolved with Sequelae]
  - Multiple sclerosis relapse [Recovered/Resolved]
  - Rib fracture [Recovered/Resolved]
  - Upper limb fracture [Recovered/Resolved]
  - Arthritis [Recovered/Resolved]
  - Emotional distress [Not Recovered/Not Resolved]
